FAERS Safety Report 10802919 (Version 1)
Quarter: 2015Q1

REPORT INFORMATION
  Report Type: Spontaneous
  Country: TR (occurrence: TR)
  Receive Date: 20150217
  Receipt Date: 20150217
  Transmission Date: 20150721
  Serious: Yes (Hospitalization, Other)
  Sender: FDA-Public Use
  Company Number: TR-BAXTER-2015BAX007456

PATIENT
  Age: 21 Year
  Sex: Male

DRUGS (3)
  1. FEIBA [Suspect]
     Active Substance: ANTI-INHIBITOR COAGULANT COMPLEX
     Indication: HAEMATURIA
     Dosage: 90 MCG/KG
     Route: 042
  2. RECOMBINANT FACTOR VIIA [Suspect]
     Active Substance: COAGULATION FACTOR VIIA RECOMBINANT HUMAN
     Indication: HAEMATURIA
     Route: 065
  3. RECOMBINANT FACTOR VIIA [Suspect]
     Active Substance: COAGULATION FACTOR VIIA RECOMBINANT HUMAN
     Indication: DISEASE RECURRENCE

REACTIONS (3)
  - Disease recurrence [Recovered/Resolved]
  - Haematuria [Recovered/Resolved]
  - Renal vein thrombosis [Recovered/Resolved]
